FAERS Safety Report 14703904 (Version 4)
Quarter: 2018Q2

REPORT INFORMATION
  Report Type: Spontaneous
  Country: US (occurrence: US)
  Receive Date: 20180402
  Receipt Date: 20180622
  Transmission Date: 20180711
  Serious: No
  Sender: FDA-Public Use
  Company Number: US-PFIZER INC-2018132425

PATIENT
  Age: 43 Year
  Sex: Female
  Weight: 91 kg

DRUGS (1)
  1. CELECOXIB. [Suspect]
     Active Substance: CELECOXIB
     Indication: FIBROMYALGIA
     Dosage: 400 MG, DAILY

REACTIONS (3)
  - Muscle spasms [Recovered/Resolved]
  - Drug ineffective for unapproved indication [Unknown]
  - Pain in extremity [Unknown]

NARRATIVE: CASE EVENT DATE: 201708
